FAERS Safety Report 6465554-2 (Version None)
Quarter: 2009Q4

REPORT INFORMATION
  Report Type: 
  Country: None (occurrence: None)
  Receive Date: 20091201
  Receipt Date: 20081110
  Transmission Date: 20100525
  Serious: No
  Sender: FDA-Public Use
  Company Number: US-AMGEN-KDL315321

PATIENT
  Sex: Male
  Weight: 90.8 kg

DRUGS (4)
  1. ENBREL [Suspect]
     Indication: PSORIASIS
     Route: 058
  2. DERMA-SMOOTHE/FS [Concomitant]
  3. TRIAMCINOLONE [Concomitant]
  4. UNSPECIFIED STEROIDS [Concomitant]
     Route: 061

REACTIONS (1)
  - PNEUMONIA [None]
